FAERS Safety Report 4928940-5 (Version None)
Quarter: 2006Q1

REPORT INFORMATION
  Report Type: 
  Country: None (occurrence: None)
  Receive Date: 20060301
  Receipt Date: 20060223
  Transmission Date: 20060701
  Serious: Yes (Other)
  Sender: FDA-Public Use
  Company Number: DE-JNJFOC-20060200652

PATIENT
  Age: 45 Year
  Sex: Female

DRUGS (3)
  1. REMICADE [Suspect]
     Dosage: LAST INFUSION IN DEC-2005
     Route: 042
  2. REMICADE [Suspect]
     Dosage: TWO INFUSIONS
     Route: 042
  3. REMICADE [Suspect]
     Indication: CROHN'S DISEASE
     Dosage: THREE INFUSIONS ON WEEKS 0,2 AND 6
     Route: 042

REACTIONS (1)
  - CARPAL TUNNEL SYNDROME [None]
